FAERS Safety Report 10237149 (Version 1)
Quarter: 2014Q2

REPORT INFORMATION
  Report Type: Spontaneous
  Country: US (occurrence: US)
  Receive Date: 20140613
  Receipt Date: 20140613
  Transmission Date: 20141212
  Serious: Yes (Other)
  Sender: FDA-Public Use
  Company Number: US-GLAXOSMITHKLINE-A1077007A

PATIENT
  Age: 51 Year
  Sex: Male

DRUGS (18)
  1. ADVAIR [Suspect]
     Indication: CHRONIC OBSTRUCTIVE PULMONARY DISEASE
     Dosage: 1PUFF TWICE PER DAY
     Route: 055
     Dates: start: 20100805
  2. MAXIDE [Concomitant]
  3. FUROSEMIDE [Concomitant]
     Indication: OEDEMA
  4. CARVEDILOL [Concomitant]
  5. BYSTOLIC [Concomitant]
  6. PLAVIX [Concomitant]
  7. NITROGLYCERIN [Concomitant]
  8. COMBIVENT [Concomitant]
  9. PROVENTIL [Concomitant]
  10. PRO-AIR [Concomitant]
  11. SINGULAIR [Concomitant]
  12. IPRATROPIUM BROMIDE [Concomitant]
  13. ALBUTEROL SULFATE [Concomitant]
  14. DULERA [Concomitant]
  15. LANTUS [Concomitant]
  16. HUMALOG [Concomitant]
  17. LEVEMIR [Concomitant]
  18. GLIMEPIRIDE [Concomitant]

REACTIONS (3)
  - Pneumonia [Recovering/Resolving]
  - Chronic hepatitis [Recovering/Resolving]
  - Abdominal pain [Not Recovered/Not Resolved]
